FAERS Safety Report 8158649-9 (Version None)
Quarter: 2012Q1

REPORT INFORMATION
  Report Type: 
  Country: None (occurrence: None)
  Receive Date: 20120217
  Receipt Date: 20120207
  Transmission Date: 20120608
  Serious: Yes (Other)
  Sender: FDA-Public Use
  Company Number: DSJ-2012-02446

PATIENT
  Sex: Female

DRUGS (10)
  1. ATENOLOL [Concomitant]
  2. METFORMIN HCL [Concomitant]
  3. ISOSORBIDE (ISOSORBIDE) (ISOSORBIDE) [Concomitant]
  4. CLOPIDOGREL [Concomitant]
  5. LEVOTHYROXINE SODIUM [Concomitant]
  6. CALCIUM (CALCIUM)(CALCIUM) [Concomitant]
  7. BENICAR [Suspect]
     Indication: HYPERTENSION
     Dosage: 40 MG (40 MG, 1 IN 1 D), PER ORAL
     Route: 048
     Dates: start: 20080101, end: 20120205
  8. ACETYLSALICYLIC ACID SRT [Concomitant]
  9. ATORVASTATIN (ATORVASTATIN)(ATORVASTATIN) [Concomitant]
  10. VITAMIN D (ERGOCALCIFEROL) (ERGOCALCIFEROL) [Concomitant]

REACTIONS (2)
  - DRUG INEFFECTIVE [None]
  - ANGIOPLASTY [None]
